FAERS Safety Report 4728669-2 (Version None)
Quarter: 2005Q3

REPORT INFORMATION
  Report Type: 
  Country: None (occurrence: None)
  Receive Date: 20050721
  Receipt Date: 20050513
  Transmission Date: 20060218
  Serious: No
  Sender: FDA-Public Use
  Company Number: 2005SP001738

PATIENT
  Age: 36 Year
  Sex: Male

DRUGS (1)
  1. LUNESTA [Suspect]
     Dosage: 1 MG;HS;ORAL
     Route: 048

REACTIONS (2)
  - HEADACHE [None]
  - MALAISE [None]
